FAERS Safety Report 16070385 (Version 1)
Quarter: 2019Q1

REPORT INFORMATION
  Report Type: Spontaneous
  Country: US (occurrence: US)
  Receive Date: 20190314
  Receipt Date: 20190314
  Transmission Date: 20190418
  Serious: No
  Sender: FDA-Public Use
  Company Number: US-009507513-1903USA003563

PATIENT
  Sex: Male

DRUGS (1)
  1. FOLLISTIM AQ [Suspect]
     Active Substance: FOLLITROPIN

REACTIONS (4)
  - Product dose omission [Unknown]
  - No adverse event [Unknown]
  - Needle issue [Unknown]
  - Wrong technique in product usage process [Unknown]
